FAERS Safety Report 4416836-7 (Version None)
Quarter: 2004Q3

REPORT INFORMATION
  Report Type: 
  Country: None (occurrence: None)
  Receive Date: 20040805
  Receipt Date: 20040726
  Transmission Date: 20050211
  Serious: Yes (Hospitalization)
  Sender: FDA-Public Use
  Company Number: PHBS2004US09932

PATIENT
  Age: 9 Month
  Sex: Male

DRUGS (2)
  1. PAMIDRONATE DISODIUM [Suspect]
     Indication: HYPERCALCAEMIA OF MALIGNANCY
     Route: 065
  2. DIURETICS [Concomitant]

REACTIONS (6)
  - BLOOD PHOSPHORUS INCREASED [None]
  - BONE LESION [None]
  - HYPERCALCAEMIA OF MALIGNANCY [None]
  - LETHARGY [None]
  - PATHOLOGICAL FRACTURE [None]
  - VOMITING [None]
